FAERS Safety Report 7056637-7 (Version None)
Quarter: 2010Q4

REPORT INFORMATION
  Report Type: 
  Country: None (occurrence: None)
  Receive Date: 20101021
  Receipt Date: 20101013
  Transmission Date: 20110411
  Serious: Yes (Other)
  Sender: FDA-Public Use
  Company Number: US-AMGEN INC.-KDL443135

PATIENT

DRUGS (3)
  1. ENBREL [Suspect]
     Indication: RHEUMATOID ARTHRITIS
     Dosage: 50 MG, QWK
     Route: 058
     Dates: start: 20100715, end: 20101010
  2. METHOTREXATE [Concomitant]
     Dosage: 25 MG, QWK
     Route: 048
     Dates: start: 20100101
  3. PRILOSEC [Concomitant]
     Dosage: 20 MG, QD
     Route: 048

REACTIONS (6)
  - BRAIN OEDEMA [None]
  - BRONCHITIS [None]
  - CEREBRAL HAEMORRHAGE [None]
  - MIGRAINE [None]
  - TRANSIENT ISCHAEMIC ATTACK [None]
  - VASCULITIS CEREBRAL [None]
